FAERS Safety Report 8341262 (Version 11)
Quarter: 2013Q2

REPORT INFORMATION
  Report Type: Spontaneous
  Country: US (occurrence: US)
  Receive Date: 20120118
  Receipt Date: 20130521
  Transmission Date: 20140414
  Serious: Yes (Hospitalization, Disabling, Other)
  Sender: FDA-Public Use
  Company Number: US-PFIZER INC-2012012270

PATIENT
  Sex: Female

DRUGS (4)
  1. LIPITOR [Suspect]
     Dosage: UNK
  2. LIPITOR [Suspect]
     Dosage: UNK
  3. LIPITOR [Suspect]
     Dosage: UNK
  4. DIFLUCAN [Suspect]
     Dosage: UNK

REACTIONS (36)
  - Rib fracture [Unknown]
  - Pelvic fracture [Unknown]
  - Deafness [Not Recovered/Not Resolved]
  - Activities of daily living impaired [Unknown]
  - Brain injury [Unknown]
  - Aphagia [Unknown]
  - Renal disorder [Unknown]
  - Fall [Unknown]
  - Spinal fracture [Unknown]
  - Renal impairment [Unknown]
  - Loss of consciousness [Unknown]
  - Rib fracture [Unknown]
  - Cerebrovascular accident [Unknown]
  - Myocardial infarction [Unknown]
  - Respiratory arrest [Unknown]
  - Hip fracture [Unknown]
  - Hypoacusis [Unknown]
  - Back disorder [Unknown]
  - Dysuria [Unknown]
  - Arterial occlusive disease [Unknown]
  - Back disorder [Unknown]
  - Headache [Unknown]
  - Pain [Unknown]
  - Blood cholesterol increased [Unknown]
  - Decreased appetite [Unknown]
  - Dry skin [Unknown]
  - Skin exfoliation [Unknown]
  - Hypertension [Unknown]
  - Somnolence [Unknown]
  - Asthenia [Unknown]
  - Foot fracture [Unknown]
  - Oral fungal infection [Unknown]
  - Blood calcium increased [Unknown]
  - Gastrointestinal disorder [Unknown]
  - Constipation [Unknown]
  - Feeling abnormal [Unknown]
